FAERS Safety Report 14245336 (Version 1)
Quarter: 2017Q4

REPORT INFORMATION
  Report Type: Spontaneous
  Country: US (occurrence: US)
  Receive Date: 20171202
  Receipt Date: 20171202
  Transmission Date: 20180321
  Serious: No
  Sender: FDA-Public Use
  Company Number: US-ENDO PHARMACEUTICALS INC-2017-005100

PATIENT
  Age: 34 Year
  Sex: Male
  Weight: 78.46 kg

DRUGS (3)
  1. XIAFLEX [Suspect]
     Active Substance: COLLAGENASE CLOSTRIDIUM HISTOLYTICUM
     Dosage: 0.58 MG, CYCLE ONE INJECTION TWO
     Route: 026
     Dates: start: 20170907, end: 20170907
  2. XIAFLEX [Suspect]
     Active Substance: COLLAGENASE CLOSTRIDIUM HISTOLYTICUM
     Indication: PEYRONIE^S DISEASE
     Dosage: 0.58 MG, CYCLE ONE INJECTION ONE
     Route: 026
     Dates: start: 20170901
  3. CLARITIN [Concomitant]
     Active Substance: LORATADINE
     Indication: URTICARIA

REACTIONS (4)
  - Penis disorder [Unknown]
  - Penile swelling [Recovered/Resolved]
  - Inappropriate schedule of drug administration [Recovered/Resolved]
  - Penile pain [Recovering/Resolving]

NARRATIVE: CASE EVENT DATE: 20170901
